FAERS Safety Report 9541915 (Version 2)
Quarter: 2013Q3

REPORT INFORMATION
  Report Type: Spontaneous
  Country: FR (occurrence: FR)
  Receive Date: 20130923
  Receipt Date: 20130923
  Transmission Date: 20140515
  Serious: Yes (Other)
  Sender: FDA-Public Use
  Company Number: PHHY2013FR091129

PATIENT
  Sex: Female

DRUGS (7)
  1. SANDOSTATIN LAR [Suspect]
     Dosage: 10 MG, ONE INJECTION MONTHLY
     Route: 030
     Dates: start: 2003
  2. SANDOSTATIN LAR [Suspect]
     Dosage: 10 MG, MONTHLY
     Route: 030
     Dates: start: 20130820, end: 20130820
  3. MEGAMAG [Concomitant]
     Dosage: UNK UKN, UNK
  4. GUTRON [Concomitant]
     Dosage: UNK UKN, UNK
  5. XANAX [Concomitant]
     Indication: PITUITARY TUMOUR BENIGN
     Dosage: UNK UKN, UNK
  6. XANAX [Concomitant]
     Dosage: UNK
  7. DOLIPRANE [Concomitant]
     Dosage: UNK UKN, UNK

REACTIONS (5)
  - Somnolence [Not Recovered/Not Resolved]
  - Stress [Not Recovered/Not Resolved]
  - Musculoskeletal stiffness [Unknown]
  - Hypotonia [Unknown]
  - Product quality issue [Unknown]
